FAERS Safety Report 7586185-7 (Version None)
Quarter: 2011Q3

REPORT INFORMATION
  Report Type: 
  Country: None (occurrence: None)
  Receive Date: 20110701
  Receipt Date: 20110628
  Transmission Date: 20111222
  Serious: Yes (Hospitalization, Disabling)
  Sender: FDA-Public Use
  Company Number: DE-SANOFI-AVENTIS-2011SA033701

PATIENT
  Age: 65 Year
  Sex: Male
  Weight: 81 kg

DRUGS (6)
  1. MULTAQ [Suspect]
     Route: 048
     Dates: start: 20100401
  2. BISO LICH [Concomitant]
     Indication: WOLFF-PARKINSON-WHITE SYNDROME
     Route: 048
     Dates: start: 20070101
  3. BISO LICH [Concomitant]
     Route: 048
     Dates: start: 20070101
  4. JODTHYROX [Concomitant]
     Indication: HYPOTHYROIDISM
     Route: 048
     Dates: start: 20040101
  5. MULTAQ [Suspect]
     Indication: ATRIAL FIBRILLATION
     Route: 048
     Dates: start: 20100401
  6. MULTAQ [Suspect]
     Indication: WOLFF-PARKINSON-WHITE SYNDROME
     Route: 048
     Dates: start: 20100401

REACTIONS (5)
  - BLEPHAROSPASM [None]
  - DYSTONIA [None]
  - EXTRAOCULAR MUSCLE PARESIS [None]
  - OPHTHALMOPLEGIA [None]
  - FOREIGN BODY SENSATION IN EYES [None]
